FAERS Safety Report 19018152 (Version 1)
Quarter: 2021Q1

REPORT INFORMATION
  Report Type: Spontaneous
  Country: FR (occurrence: FR)
  Receive Date: 20210317
  Receipt Date: 20210317
  Transmission Date: 20210420
  Serious: Yes (Other)
  Sender: FDA-Public Use
  Company Number: FR-SA-2021SA089953

PATIENT
  Age: 2 Month
  Sex: Male
  Weight: 6 kg

DRUGS (1)
  1. GAVISCON [Suspect]
     Active Substance: ALUMINUM HYDROXIDE\MAGNESIUM CARBONATE
     Indication: GASTROOESOPHAGEAL REFLUX DISEASE
     Dosage: 2.5 ML
     Route: 048
     Dates: start: 20210221, end: 2021

REACTIONS (1)
  - Hypotonic-hyporesponsive episode [Recovered/Resolved]

NARRATIVE: CASE EVENT DATE: 20210221
